FAERS Safety Report 17660912 (Version 1)
Quarter: 2020Q2

REPORT INFORMATION
  Report Type: Spontaneous
  Country: US (occurrence: US)
  Receive Date: 20200410
  Receipt Date: 20200410
  Transmission Date: 20200713
  Serious: No
  Sender: FDA-Public Use
  Company Number: None

PATIENT
  Age: 38 Year
  Sex: Female

DRUGS (1)
  1. TALTZ [Suspect]
     Active Substance: IXEKIZUMAB
     Indication: PSORIASIS
     Dosage: FREQUENCY: EVERY 4 WEEKS
     Route: 058
     Dates: start: 20171110

REACTIONS (3)
  - Drug ineffective [None]
  - Disease recurrence [None]
  - Injection site pain [None]

NARRATIVE: CASE EVENT DATE: 20200101
